FAERS Safety Report 6453082-X (Version None)
Quarter: 2009Q4

REPORT INFORMATION
  Report Type: 
  Country: None (occurrence: None)
  Receive Date: 20091124
  Receipt Date: 20091119
  Transmission Date: 20100525
  Serious: Yes (Death, Hospitalization, Other)
  Sender: FDA-Public Use
  Company Number: US-ELI_LILLY_AND_COMPANY-US200910000812

PATIENT
  Sex: Female

DRUGS (6)
  1. ALIMTA [Suspect]
     Indication: NON-SMALL CELL LUNG CANCER STAGE IV
     Dosage: UNK, UNK
     Dates: start: 20090901, end: 20090921
  2. FOLIC ACID [Concomitant]
  3. VITAMIN B-12 [Concomitant]
  4. DECADRON                                /CAN/ [Concomitant]
  5. WARFARIN SODIUM [Concomitant]
  6. ARANESP [Concomitant]
     Indication: ANAEMIA

REACTIONS (2)
  - ISCHAEMIC STROKE [None]
  - UROSEPSIS [None]
